FAERS Safety Report 23391713 (Version 1)
Quarter: 2024Q1

REPORT INFORMATION
  Report Type: Report from Study
  Country: KR (occurrence: KR)
  Receive Date: 20240111
  Receipt Date: 20240111
  Transmission Date: 20240410
  Serious: Yes (Death)
  Sender: FDA-Public Use
  Company Number: KR-GTI-000093

PATIENT
  Age: 61 Year
  Sex: Male

DRUGS (5)
  1. PREDNISONE [Suspect]
     Active Substance: PREDNISONE
     Indication: Diffuse large B-cell lymphoma
     Route: 065
  2. RITUXIMAB [Suspect]
     Active Substance: RITUXIMAB
     Indication: Diffuse large B-cell lymphoma
     Route: 065
  3. CYCLOPHOSPHAMIDE [Suspect]
     Active Substance: CYCLOPHOSPHAMIDE
     Indication: Diffuse large B-cell lymphoma
     Route: 065
  4. DOXORUBICIN [Suspect]
     Active Substance: DOXORUBICIN
     Indication: Diffuse large B-cell lymphoma
     Route: 065
  5. VINCRISTINE [Suspect]
     Active Substance: VINCRISTINE
     Indication: Diffuse large B-cell lymphoma
     Route: 065

REACTIONS (6)
  - Disease progression [Fatal]
  - Multiple-drug resistance [Unknown]
  - EZH2 gene mutation [Unknown]
  - SF3B1 gene mutation [Unknown]
  - Gene mutation [Unknown]
  - Diffuse large B-cell lymphoma [Fatal]
